FAERS Safety Report 23886822 (Version 1)
Quarter: 2024Q2

REPORT INFORMATION
  Report Type: Report from Study
  Country: DE (occurrence: DE)
  Receive Date: 20240522
  Receipt Date: 20240522
  Transmission Date: 20240717
  Serious: Yes (Hospitalization)
  Sender: FDA-Public Use
  Company Number: DE-ABBVIE-5766694

PATIENT
  Age: 76 Year
  Sex: Male

DRUGS (2)
  1. CARBIDOPA\LEVODOPA [Suspect]
     Active Substance: CARBIDOPA\LEVODOPA
     Indication: Parkinson^s disease
     Dosage: MD: 8.5 ML; CRD: 4.4 ML/H; ED: 3.0 ML
     Route: 050
     Dates: start: 20211027
  2. CARBIDOPA\LEVODOPA [Suspect]
     Active Substance: CARBIDOPA\LEVODOPA
     Dosage: MD: 8.0 ML; CRD: 4.1 ML/H; ED: 3.0 ML
     Route: 050

REACTIONS (3)
  - Fall [Recovered/Resolved]
  - Hyperkinesia [Unknown]
  - Swelling [Unknown]

NARRATIVE: CASE EVENT DATE: 20240303
